FAERS Safety Report 12780292 (Version 1)
Quarter: 2016Q3

REPORT INFORMATION
  Report Type: Spontaneous
  Country: US (occurrence: US)
  Receive Date: 20160926
  Receipt Date: 20160926
  Transmission Date: 20161109
  Serious: No
  Sender: FDA-Public Use
  Company Number: US-GE HEALTHCARE MEDICAL DIAGNOSTICS-N131-PR-1508L-0026

PATIENT
  Age: 59 Year
  Sex: Female

DRUGS (4)
  1. LEVOTHYROXINE. [Concomitant]
     Active Substance: LEVOTHYROXINE
  2. [I-131] SODIUM IODIDE [Suspect]
     Active Substance: SODIUM IODIDE I-131
     Indication: DIAGNOSTIC PROCEDURE
  3. CHOLECALCIFEROL [Concomitant]
     Active Substance: CHOLECALCIFEROL
     Indication: PROPHYLAXIS
  4. [I-131] SODIUM IODIDE [Suspect]
     Active Substance: SODIUM IODIDE I-131
     Indication: PAPILLARY THYROID CANCER
     Dosage: DOSE NOT REPORTED
     Route: 065

REACTIONS (4)
  - Epistaxis [Recovered/Resolved]
  - Rhinalgia [Recovered/Resolved]
  - Sinusitis [Recovered/Resolved]
  - Nasal dryness [Recovered/Resolved]
